FAERS Safety Report 6514673-0 (Version None)
Quarter: 2009Q4

REPORT INFORMATION
  Report Type: 
  Country: None (occurrence: None)
  Receive Date: 20091222
  Receipt Date: 20091222
  Transmission Date: 20100525
  Serious: Yes (Other)
  Sender: FDA-Public Use
  Company Number: None

PATIENT
  Age: 74 Year
  Sex: Female
  Weight: 72.1219 kg

DRUGS (1)
  1. FORTICAL [Suspect]
     Indication: OSTEOPOROSIS
     Dosage: 1 SPRAY 1XDAY
     Dates: start: 20091120, end: 20091214

REACTIONS (3)
  - GAIT DISTURBANCE [None]
  - MYALGIA [None]
  - TREATMENT FAILURE [None]
